FAERS Safety Report 17825393 (Version 14)
Quarter: 2022Q4

REPORT INFORMATION
  Report Type: Spontaneous
  Country: US (occurrence: US)
  Receive Date: 20200526
  Receipt Date: 20221208
  Transmission Date: 20230112
  Serious: No
  Sender: FDA-Public Use
  Company Number: US-PFIZER INC-2020135338

PATIENT
  Age: 66 Year
  Sex: Female
  Weight: 108.84 kg

DRUGS (4)
  1. ARTHROTEC [Suspect]
     Active Substance: DICLOFENAC SODIUM\MISOPROSTOL
     Dosage: 2 DF, DAILY
     Route: 048
  2. ARTHROTEC [Suspect]
     Active Substance: DICLOFENAC SODIUM\MISOPROSTOL
     Dosage: 1 DF, DAILY
     Route: 048
  3. ARTHROTEC [Suspect]
     Active Substance: DICLOFENAC SODIUM\MISOPROSTOL
     Dosage: 75 MG, DAILY
     Route: 048
  4. ARTHROTEC [Suspect]
     Active Substance: DICLOFENAC SODIUM\MISOPROSTOL
     Dosage: 75 MG, 1X/DAY
     Route: 048

REACTIONS (8)
  - Off label use [Unknown]
  - Product dispensing error [Unknown]
  - Intentional product use issue [Unknown]
  - Product dose omission issue [Unknown]
  - Immune system disorder [Unknown]
  - Pain [Unknown]
  - Hypertension [Unknown]
  - Dyspnoea [Unknown]
